FAERS Safety Report 8975607 (Version 1)
Quarter: 2012Q4

REPORT INFORMATION
  Report Type: 
  Country: IN (occurrence: IN)
  Receive Date: 20121219
  Receipt Date: 20121219
  Transmission Date: 20130627
  Serious: Yes (Death)
  Sender: FDA-Public Use
  Company Number: IN-PFIZER INC-2012318152

PATIENT
  Age: 60 Year
  Sex: Male

DRUGS (2)
  1. LINEZOLID [Suspect]
     Indication: INFECTION MRSA
     Dosage: 600 mg, 2x/day
     Route: 048
  2. VANCOMYCIN HCL [Suspect]
     Indication: INFECTION MRSA
     Dosage: 1 g, 3x/day
     Route: 042

REACTIONS (2)
  - Drug ineffective [Fatal]
  - CNS ventriculitis [Fatal]
